FAERS Safety Report 11077524 (Version 2)
Quarter: 2015Q2

REPORT INFORMATION
  Report Type: Spontaneous
  Country: US (occurrence: US)
  Receive Date: 20150430
  Receipt Date: 20150526
  Transmission Date: 20150821
  Serious: No
  Sender: FDA-Public Use
  Company Number: US-JNJFOC-20150400234

PATIENT
  Sex: Female
  Weight: 79.38 kg

DRUGS (3)
  1. ATENOLOL. [Concomitant]
     Active Substance: ATENOLOL
     Indication: HYPERTENSION
     Dosage: STRENGTH: 25 MG
     Route: 065
  2. TYLENOL WITH CODEINE [Suspect]
     Active Substance: ACETAMINOPHEN\CODEINE PHOSPHATE
     Indication: BACK DISORDER
     Dosage: 1-2 PILLS
     Route: 048
     Dates: end: 2015
  3. TYLENOL WITH CODEINE [Suspect]
     Active Substance: ACETAMINOPHEN\CODEINE PHOSPHATE
     Indication: BACK DISORDER
     Dosage: 1-2 PILLS
     Route: 048
     Dates: start: 2015

REACTIONS (1)
  - Therapeutic response decreased [Not Recovered/Not Resolved]
